FAERS Safety Report 14664406 (Version 1)
Quarter: 2018Q1

REPORT INFORMATION
  Report Type: Spontaneous
  Country: US (occurrence: US)
  Receive Date: 20180319
  Receipt Date: 20180319
  Transmission Date: 20180509
  Serious: Yes (Other)
  Sender: FDA-Public Use
  Company Number: None

PATIENT
  Age: 54 Year
  Sex: Male

DRUGS (2)
  1. VIREAD [Suspect]
     Active Substance: TENOFOVIR DISOPROXIL FUMARATE
     Indication: IRON DEFICIENCY ANAEMIA
     Route: 048
     Dates: start: 20180204, end: 20180316
  2. VIREAD [Suspect]
     Active Substance: TENOFOVIR DISOPROXIL FUMARATE
     Indication: ACUTE HEPATITIS B
     Route: 048
     Dates: start: 20180204, end: 20180316

REACTIONS (2)
  - Hypophagia [None]
  - Nausea [None]

NARRATIVE: CASE EVENT DATE: 20180316
